FAERS Safety Report 4599915-3 (Version None)
Quarter: 2005Q1

REPORT INFORMATION
  Report Type: 
  Country: None (occurrence: None)
  Receive Date: 20050303
  Receipt Date: 20050214
  Transmission Date: 20050727
  Serious: No
  Sender: FDA-Public Use
  Company Number: GBS050216571

PATIENT
  Age: 43 Year
  Sex: Female

DRUGS (1)
  1. YENTREVE (DULOXETINE HYDROCHLORIDE) [Suspect]
     Indication: STRESS INCONTINENCE
     Dosage: 40 MG/2 DAY

REACTIONS (5)
  - DYSURIA [None]
  - NAUSEA [None]
  - SYNCOPE [None]
  - URINARY RETENTION [None]
  - VOMITING [None]
